FAERS Safety Report 16323718 (Version 1)
Quarter: 2019Q2

REPORT INFORMATION
  Report Type: Spontaneous
  Country: US (occurrence: US)
  Receive Date: 20190517
  Receipt Date: 20190517
  Transmission Date: 20190711
  Serious: No
  Sender: FDA-Public Use
  Company Number: US-009507513-1905USA005326

PATIENT

DRUGS (1)
  1. NEXPLANON [Suspect]
     Active Substance: ETONOGESTREL
     Dosage: INSERTED MORE THAN 3 YEARS AT THIS POINT
     Route: 059

REACTIONS (2)
  - Incorrect product administration duration [Unknown]
  - No adverse event [Unknown]
